FAERS Safety Report 11272019 (Version 1)
Quarter: 2015Q3

REPORT INFORMATION
  Report Type: Spontaneous
  Country: GB (occurrence: GB)
  Receive Date: 20150715
  Receipt Date: 20150715
  Transmission Date: 20151125
  Serious: Yes (Disabling, Other)
  Sender: FDA-Public Use
  Company Number: GB-BRISTOL-MYERS SQUIBB COMPANY-10812303

PATIENT
  Sex: Female

DRUGS (2)
  1. ADCORTYL [Suspect]
     Active Substance: TRIAMCINOLONE ACETONIDE
     Indication: INTERVERTEBRAL DISC PROTRUSION
     Dosage: UNK
     Route: 008
     Dates: start: 199901, end: 199902
  2. PROCAINE HCL [Suspect]
     Active Substance: PROCAINE HYDROCHLORIDE
     Indication: PRODUCT USED FOR UNKNOWN INDICATION
     Dosage: 0.5% PROCAINE HCL IN NORMAL SALINE.
     Route: 008

REACTIONS (15)
  - Levator syndrome [Unknown]
  - Muscle strain [Not Recovered/Not Resolved]
  - Back pain [Unknown]
  - Nerve injury [Unknown]
  - Colitis [Unknown]
  - Off label use [Unknown]
  - Cataract [Unknown]
  - Ear disorder [Unknown]
  - Anorectal disorder [Unknown]
  - Granuloma [Unknown]
  - Arachnoiditis [Not Recovered/Not Resolved]
  - Pain [Not Recovered/Not Resolved]
  - Visual impairment [Unknown]
  - Polyp [Unknown]
  - Gastrointestinal motility disorder [Unknown]

NARRATIVE: CASE EVENT DATE: 1999
